FAERS Safety Report 20775844 (Version 7)
Quarter: 2022Q2

REPORT INFORMATION
  Report Type: Report from Study
  Country: TW (occurrence: TW)
  Receive Date: 20220502
  Receipt Date: 20220627
  Transmission Date: 20220721
  Serious: Yes (Life-Threatening, Hospitalization)
  Sender: FDA-Public Use
  Company Number: TW-PFIZER INC-202200631988

PATIENT
  Age: 57 Year
  Sex: Male
  Weight: 66.8 kg

DRUGS (19)
  1. BINIMETINIB [Suspect]
     Active Substance: BINIMETINIB
     Indication: Non-small cell lung cancer
     Dosage: 45 MG, BID
     Route: 048
     Dates: start: 20220329, end: 20220410
  2. BINIMETINIB [Suspect]
     Active Substance: BINIMETINIB
     Dosage: 30 MG, BID
     Route: 048
     Dates: start: 20220426, end: 20220426
  3. ENCORAFENIB [Suspect]
     Active Substance: ENCORAFENIB
     Indication: Non-small cell lung cancer
     Dosage: 450 MG, QD
     Route: 048
     Dates: start: 20220329, end: 20220411
  4. ENCORAFENIB [Suspect]
     Active Substance: ENCORAFENIB
     Dosage: 300 MG, QD
     Route: 048
     Dates: start: 20220426, end: 20220426
  5. SASANLIMAB [Suspect]
     Active Substance: SASANLIMAB
     Indication: Non-small cell lung cancer
     Dosage: 300 MG, CYCLIC (Q4W)
     Route: 058
     Dates: start: 20220329, end: 20220426
  6. ULTRACET [Concomitant]
     Active Substance: ACETAMINOPHEN\TRAMADOL HYDROCHLORIDE
     Indication: Pain
     Dosage: UNK
     Dates: start: 20220223, end: 20220420
  7. MORPHINE [Concomitant]
     Active Substance: MORPHINE
     Indication: Pain
     Dosage: UNK
     Dates: start: 20220206, end: 20220427
  8. CHLORZOXAZONE [Concomitant]
     Active Substance: CHLORZOXAZONE
     Indication: Pain
     Dosage: UNK
     Dates: start: 20220310, end: 20220420
  9. LORAPSEUDO [Concomitant]
     Indication: Nasal congestion
     Dosage: UNK
     Route: 048
     Dates: start: 20220406, end: 20220426
  10. LORAPSEUDO [Concomitant]
     Dosage: 1 TAB, QN
     Route: 048
     Dates: start: 20220427, end: 202205
  11. LORAPSEUDO [Concomitant]
     Dosage: 1 TAB, QD
     Route: 048
     Dates: start: 20220502, end: 20220504
  12. BENZONATATE [Concomitant]
     Active Substance: BENZONATATE
     Indication: Cough
     Dosage: UNK
     Dates: start: 20220220, end: 20220420
  13. METFORMIN HYDROCHLORIDE\VILDAGLIPTIN [Concomitant]
     Active Substance: METFORMIN HYDROCHLORIDE\VILDAGLIPTIN
     Indication: Type 2 diabetes mellitus
     Dosage: UNK
     Route: 048
     Dates: start: 20220222
  14. FLUTICASONE FUROATE [Concomitant]
     Active Substance: FLUTICASONE FUROATE
     Indication: Nasal congestion
     Dosage: UNK
     Dates: start: 20220406
  15. NEXIUM [Concomitant]
     Active Substance: ESOMEPRAZOLE MAGNESIUM
     Indication: Abdominal pain upper
     Dosage: UNK
     Dates: start: 20220325, end: 20220425
  16. NEXIUM [Concomitant]
     Active Substance: ESOMEPRAZOLE MAGNESIUM
     Dosage: 40 MG, QD
     Route: 048
     Dates: start: 20220428
  17. SENNOSIDES A AND B [Concomitant]
     Active Substance: SENNOSIDES A AND B
     Indication: Constipation
     Dosage: UNK
     Dates: start: 20220322, end: 20220504
  18. DIETARY SUPPLEMENT\HERBALS\MILK THISTLE [Concomitant]
     Active Substance: DIETARY SUPPLEMENT\HERBALS\MILK THISTLE
     Indication: Hepatitis
     Dosage: UNK
     Dates: start: 20220411, end: 20220504
  19. PIPERACILLIN SODIUM\TAZOBACTAM SODIUM [Concomitant]
     Active Substance: PIPERACILLIN SODIUM\TAZOBACTAM SODIUM
     Indication: Pyrexia
     Dosage: UNK
     Dates: start: 20220411, end: 20220412

REACTIONS (1)
  - Anaphylactic shock [Recovered/Resolved]

NARRATIVE: CASE EVENT DATE: 20220426
